FAERS Safety Report 10038401 (Version 1)
Quarter: 2014Q1

REPORT INFORMATION
  Report Type: Spontaneous
  Country: US (occurrence: None)
  Receive Date: 20140306
  Receipt Date: 20140306
  Transmission Date: 20141002
  Serious: Yes (Other)
  Sender: FDA-Public Use
  Company Number: 163-21880-13106262

PATIENT
  Age: 77 Year
  Sex: Male

DRUGS (14)
  1. REVLIMID [Suspect]
     Indication: PLASMA CELL MYELOMA
     Dosage: 03/2011 - TEMPORARILY INTERRUPTED (1 IN 1 D)
     Route: 048
     Dates: start: 201103
  2. SEPTRA DS (BACTRIM) [Concomitant]
  3. GLYBURIDE (GLIBENCLAMIDE) [Concomitant]
  4. UROXATRAL (ALFUZOSIN HYDROCHLORIDE) [Concomitant]
  5. PREDNISONE [Concomitant]
  6. DEXAMETHASONE [Concomitant]
  7. NEXIUM (ESOMEPRAZOLE) [Concomitant]
  8. FISH OIL [Concomitant]
  9. ACTONEL (RISEDRONATE SODIUM) [Concomitant]
  10. NEUPOGEN (FILGRASTIM) [Concomitant]
  11. LEVOTHYROXINE SODIUM (LEVOTHYROXINE SODIUM) [Concomitant]
  12. PROGRAF (TACROLIMUS) [Concomitant]
  13. COZAAR (LOSARTAN POTASSIUM) [Concomitant]
  14. VELCADE (BORTEZOMIB) [Concomitant]

REACTIONS (1)
  - Pancytopenia [None]
